FAERS Safety Report 6050510-9 (Version None)
Quarter: 2009Q1

REPORT INFORMATION
  Report Type: 
  Country: None (occurrence: None)
  Receive Date: 20090126
  Receipt Date: 20090120
  Transmission Date: 20090719
  Serious: Yes (Death)
  Sender: FDA-Public Use
  Company Number: PHBS2009US00556

PATIENT
  Age: 66 Year
  Sex: Male

DRUGS (8)
  1. BASILIXIMAB [Suspect]
     Dosage: 3 DOSES
  2. DAPTOMYCIN [Suspect]
  3. DACLIZUMAB [Concomitant]
     Dosage: ONE DOSE
  4. VORICONAZOLE [Concomitant]
  5. ACYCLOVIR SODIUM [Concomitant]
  6. AZTREONAM [Concomitant]
  7. NEUPOGEN [Concomitant]
     Indication: NEUTROPENIA
  8. STEROIDS NOS [Concomitant]

REACTIONS (3)
  - CARDIO-RESPIRATORY ARREST [None]
  - ENDOTRACHEAL INTUBATION [None]
  - PNEUMONIA INFLUENZAL [None]
